FAERS Safety Report 8654244 (Version 3)
Quarter: 2012Q4

REPORT INFORMATION
  Report Type: 
  Country: US (occurrence: US)
  Receive Date: 20120709
  Receipt Date: 20121212
  Transmission Date: 20130627
  Serious: Yes (Other)
  Sender: FDA-Public Use
  Company Number: US-JNJFOC-20120701478

PATIENT
  Sex: Male
  Weight: 56 kg

DRUGS (18)
  1. DOXORUBICIN HYDROCHLORIDE (DOXIL) [Suspect]
     Indication: MULTIPLE MYELOMA
     Dosage: for 4 cycles
     Route: 042
     Dates: start: 201001, end: 201003
  2. VELCADE [Suspect]
     Indication: MULTIPLE MYELOMA
     Dosage: for 4 cycles
     Route: 042
     Dates: start: 201001, end: 201003
  3. ZOMETA [Suspect]
     Indication: MULTIPLE MYELOMA
     Route: 065
     Dates: start: 200712, end: 201006
  4. REVLIMID [Suspect]
     Indication: MULTIPLE MYELOMA
     Route: 065
     Dates: start: 201007, end: 201007
  5. FENTANYL [Concomitant]
     Route: 065
  6. ASPIRIN [Concomitant]
     Route: 065
  7. MULTIVITAMINS [Concomitant]
     Route: 065
  8. COLACE [Concomitant]
     Route: 065
  9. HYDROCHLOROTHIAZIDE [Concomitant]
     Route: 065
  10. PROZAC [Concomitant]
     Indication: DEPRESSION
     Route: 065
  11. LYRICA [Concomitant]
     Route: 065
  12. SENOKOT [Concomitant]
     Route: 065
  13. REGLAN [Concomitant]
     Route: 065
  14. POTASSIUM CHLORIDE [Concomitant]
     Route: 065
  15. MEGACE [Concomitant]
     Route: 065
  16. HYDROCORTISONE [Concomitant]
     Dosage: 20 mg in morning and 10 mg in evening
     Route: 065
  17. PERIDEX [Concomitant]
     Route: 065
  18. VICODIN [Concomitant]
     Indication: PAIN
     Route: 065

REACTIONS (8)
  - Pneumonia [Unknown]
  - Failure to thrive [Recovered/Resolved]
  - Deep vein thrombosis [Unknown]
  - Tooth loss [Unknown]
  - Asthenia [Unknown]
  - Oral pain [Unknown]
  - Fatigue [Unknown]
  - Blood immunoglobulin M decreased [Unknown]
